FAERS Safety Report 25800340 (Version 1)
Quarter: 2025Q3

REPORT INFORMATION
  Report Type: Report from Study
  Country: US (occurrence: US)
  Receive Date: 20250915
  Receipt Date: 20250915
  Transmission Date: 20251021
  Serious: Yes (Hospitalization)
  Sender: ALEXION PHARMACEUTICALS
  Company Number: US-AstraZeneca-CH-00946394A

PATIENT
  Age: 72 Year
  Sex: Female

DRUGS (1)
  1. CAPIVASERTIB [Suspect]
     Active Substance: CAPIVASERTIB
     Indication: Malignant nipple neoplasm female
     Dosage: 320 MILLIGRAM, BID
     Dates: start: 20250417

REACTIONS (1)
  - Illness [Unknown]
